FAERS Safety Report 11796886 (Version 1)
Quarter: 2015Q4

REPORT INFORMATION
  Report Type: Spontaneous
  Country: US (occurrence: None)
  Receive Date: 20151202
  Receipt Date: 20151202
  Transmission Date: 20160305
  Serious: Yes (Hospitalization)
  Sender: FDA-Public Use
  Company Number: None

PATIENT
  Age: 70 Year
  Sex: Female
  Weight: 83.4 kg

DRUGS (10)
  1. OXYBUTYNIN CR [Concomitant]
  2. LOPERAMIDE [Concomitant]
     Active Substance: LOPERAMIDE
  3. ASPIRIN 81 MG [Concomitant]
     Active Substance: ASPIRIN
  4. ERGOCALCIFEROL. [Concomitant]
     Active Substance: ERGOCALCIFEROL
  5. FUROSEMIDE. [Concomitant]
     Active Substance: FUROSEMIDE
  6. PRAVASTATIN [Concomitant]
     Active Substance: PRAVASTATIN\PRAVASTATIN SODIUM
  7. LISINOPRIL 20 MG UNKNOWN [Suspect]
     Active Substance: LISINOPRIL
     Indication: HYPERTENSION
     Route: 048
  8. ESOMEPRAZOLE [Concomitant]
     Active Substance: ESOMEPRAZOLE
  9. DIPHYENOXYLATE-ATROPINE [Concomitant]
  10. POTASSIUM CHLORIDE. [Concomitant]
     Active Substance: POTASSIUM CHLORIDE

REACTIONS (1)
  - Angioedema [None]

NARRATIVE: CASE EVENT DATE: 20150901
